FAERS Safety Report 8576086-X (Version None)
Quarter: 2012Q3

REPORT INFORMATION
  Report Type: 
  Country: None (occurrence: None)
  Receive Date: 20120724
  Receipt Date: 20120712
  Transmission Date: 20120928
  Serious: Yes (Life-Threatening)
  Sender: FDA-Public Use
  Company Number: 2012HGS-003752

PATIENT
  Sex: Female
  Weight: 70 kg

DRUGS (2)
  1. BENLYSTA [Suspect]
     Indication: SYSTEMIC LUPUS ERYTHEMATOSUS
     Dosage: 640 MG, 1 IN 28 D, INTRAVENOUS DRIP
     Route: 041
     Dates: start: 20120419
  2. CORTISONE (CORTISONE) (CORTISONE) [Concomitant]

REACTIONS (7)
  - DRUG DOSE OMISSION [None]
  - DYSPNOEA [None]
  - WHITE BLOOD CELL COUNT INCREASED [None]
  - DRUG INEFFECTIVE [None]
  - CRYING [None]
  - DEPRESSION [None]
  - CHEST DISCOMFORT [None]
